FAERS Safety Report 7115280-1 (Version None)
Quarter: 2010Q4

REPORT INFORMATION
  Report Type: 
  Country: None (occurrence: None)
  Receive Date: 20101122
  Receipt Date: 20101109
  Transmission Date: 20110411
  Serious: Yes (Other)
  Sender: FDA-Public Use
  Company Number: US-JNJFOC-20100703828

PATIENT
  Sex: Female
  Weight: 71.22 kg

DRUGS (1)
  1. LEVAQUIN [Suspect]
     Indication: URINARY TRACT INFECTION
     Route: 048

REACTIONS (7)
  - ARTHRALGIA [None]
  - CARTILAGE INJURY [None]
  - FIBROMYALGIA [None]
  - INTENTIONAL DRUG MISUSE [None]
  - NEUROPATHY PERIPHERAL [None]
  - TENDON DISORDER [None]
  - TENDONITIS [None]
